FAERS Safety Report 4554260-7 (Version None)
Quarter: 2004Q4

REPORT INFORMATION
  Report Type: 
  Country: None (occurrence: None)
  Receive Date: 20041227
  Receipt Date: 20041123
  Transmission Date: 20050328
  Serious: Yes (Hospitalization)
  Sender: FDA-Public Use
  Company Number: 04P-163-0281604-00

PATIENT
  Age: 75 Year
  Sex: Female
  Weight: 56.6996 kg

DRUGS (9)
  1. HUMIRA [Suspect]
     Indication: RHEUMATOID ARTHRITIS
     Dosage: 40 M G, 1 IN 2 WK, SUBCUTANEOUS
     Route: 058
     Dates: start: 20031201, end: 20040801
  2. HUMIRA [Suspect]
     Indication: RHEUMATOID ARTHRITIS
     Dosage: 40 M G, 1 IN 2 WK, SUBCUTANEOUS
     Route: 058
     Dates: start: 20040909, end: 20040901
  3. HUMIRA [Suspect]
     Indication: RHEUMATOID ARTHRITIS
     Dosage: 40 M G, 1 IN 2 WK, SUBCUTANEOUS
     Route: 058
     Dates: start: 20041001
  4. BISOPROLOL FUMARATE [Concomitant]
  5. HYZAAR [Concomitant]
  6. LEVOTHYROXINE SODIUM [Concomitant]
  7. ESTROGENS CONJUGATED [Concomitant]
  8. SERTRALINE HYDROCHLORIDE [Concomitant]
  9. PREDNISONE [Concomitant]

REACTIONS (4)
  - ATRIAL FIBRILLATION [None]
  - BREAST CANCER [None]
  - HERPES ZOSTER [None]
  - TOOTH ABSCESS [None]
